FAERS Safety Report 23469985 (Version 1)
Quarter: 2024Q1

REPORT INFORMATION
  Report Type: Spontaneous
  Country: JP (occurrence: JP)
  Receive Date: 20240202
  Receipt Date: 20240202
  Transmission Date: 20240410
  Serious: Yes (Death)
  Sender: FDA-Public Use
  Company Number: JP-MYLANLABS-2024M1008559

PATIENT
  Age: 34 Year
  Sex: Female

DRUGS (8)
  1. CARBOPLATIN [Suspect]
     Active Substance: CARBOPLATIN
     Indication: PD-L1 positive cancer
     Dosage: UNK
     Route: 065
  2. ATEZOLIZUMAB [Suspect]
     Active Substance: ATEZOLIZUMAB
     Indication: PD-L1 positive cancer
     Dosage: UNK
     Route: 065
  3. PACLITAXEL [Suspect]
     Active Substance: PACLITAXEL
     Indication: PD-L1 positive cancer
     Dosage: UNK
     Route: 065
  4. OLAPARIB [Suspect]
     Active Substance: OLAPARIB
     Indication: PD-L1 positive cancer
     Dosage: UNK
     Route: 065
  5. PEMBROLIZUMAB [Suspect]
     Active Substance: PEMBROLIZUMAB
     Indication: PD-L1 positive cancer
     Dosage: UNK
     Route: 065
  6. GEMCITABINE [Suspect]
     Active Substance: GEMCITABINE
     Indication: PD-L1 positive cancer
     Dosage: UNK
     Route: 065
  7. ERIBULIN [Suspect]
     Active Substance: ERIBULIN
     Indication: PD-L1 positive cancer
     Dosage: UNK
     Route: 065
  8. TS-1 [Suspect]
     Active Substance: GIMERACIL\OTERACIL POTASSIUM\TEGAFUR
     Indication: PD-L1 positive cancer
     Dosage: UNK
     Route: 065

REACTIONS (1)
  - Drug ineffective [Fatal]
